FAERS Safety Report 22161943 (Version 9)
Quarter: 2025Q4

REPORT INFORMATION
  Report Type: Spontaneous
  Country: US (occurrence: US)
  Receive Date: 20230331
  Receipt Date: 20251211
  Transmission Date: 20260118
  Serious: No
  Sender: PFIZER
  Company Number: US-PFIZER INC-PV202300058633

PATIENT
  Age: 54 Year
  Sex: Female

DRUGS (1)
  1. IBRANCE [Suspect]
     Active Substance: PALBOCICLIB
     Indication: Breast cancer female
     Dosage: 125 MG

REACTIONS (12)
  - Headache [Unknown]
  - Blister [Unknown]
  - Fatigue [Unknown]
  - Nausea [Unknown]
  - Decreased immune responsiveness [Unknown]
  - Full blood count decreased [Unknown]
  - Cheilitis [Unknown]
  - Urine abnormality [Unknown]
  - Oropharyngeal pain [Unknown]
  - Lymphadenopathy [Unknown]
  - White blood cell count decreased [Unknown]
  - Product dose omission in error [Unknown]
